FAERS Safety Report 5068670-5 (Version None)
Quarter: 2006Q3

REPORT INFORMATION
  Report Type: 
  Country: None (occurrence: None)
  Receive Date: 20060802
  Receipt Date: 20060202
  Transmission Date: 20061208
  Serious: No
  Sender: FDA-Public Use
  Company Number: US-BRISTOL-MYERS SQUIBB COMPANY-13270616

PATIENT
  Age: 66 Year
  Sex: Female
  Weight: 77 kg

DRUGS (1)
  1. COUMADIN [Suspect]
     Indication: MITRAL VALVE REPLACEMENT
     Dates: start: 20051208

REACTIONS (1)
  - INTERNATIONAL NORMALISED RATIO INCREASED [None]
